FAERS Safety Report 6151524-0 (Version None)
Quarter: 2009Q2

REPORT INFORMATION
  Report Type: 
  Country: None (occurrence: None)
  Receive Date: 20090410
  Receipt Date: 20090331
  Transmission Date: 20091009
  Serious: Yes (Other)
  Sender: FDA-Public Use
  Company Number: US-ROCHE-620900

PATIENT
  Sex: Female
  Weight: 105.2 kg

DRUGS (9)
  1. CAPECITABINE [Suspect]
     Indication: BREAST CANCER
     Dosage: TAKEN FOR 14 DAYS
     Route: 048
     Dates: start: 20080904
  2. CAPECITABINE [Suspect]
     Route: 048
     Dates: start: 20081016, end: 20081101
  3. CAPECITABINE [Suspect]
     Route: 048
     Dates: start: 20081101
  4. CAPECITABINE [Suspect]
     Route: 048
     Dates: end: 20090301
  5. TYKERB [Suspect]
     Indication: BREAST CANCER
     Route: 048
     Dates: start: 20080904, end: 20090301
  6. SYNTHROID [Concomitant]
     Route: 048
  7. CALCIUM [Concomitant]
     Route: 048
  8. VIT D [Concomitant]
     Dosage: DAILY DOSAGE
     Route: 048
  9. NORVASC [Concomitant]
     Route: 048

REACTIONS (3)
  - BLOOD BILIRUBIN INCREASED [None]
  - BRAIN NEOPLASM MALIGNANT [None]
  - PALMAR-PLANTAR ERYTHRODYSAESTHESIA SYNDROME [None]
